FAERS Safety Report 23659563 (Version 1)
Quarter: 2024Q1

REPORT INFORMATION
  Report Type: Spontaneous
  Country: CN (occurrence: CN)
  Receive Date: 20240321
  Receipt Date: 20240321
  Transmission Date: 20240410
  Serious: Yes (Hospitalization)
  Sender: FDA-Public Use
  Company Number: CN-Merck Healthcare KGaA-2024014002

PATIENT
  Age: 65 Year
  Sex: Male
  Weight: 60 kg

DRUGS (4)
  1. ERBITUX [Suspect]
     Active Substance: CETUXIMAB
     Indication: Neoplasm malignant
     Dosage: 800 MG, UNK (ALONG WITH 0.9 PERCENT SODIUM CHLORIDE INJECTION 250ML)
     Route: 041
     Dates: start: 20240131
  2. CISPLATIN [Suspect]
     Active Substance: CISPLATIN
     Indication: Neoplasm malignant
     Dosage: 40 MG, DAILY
     Route: 041
     Dates: start: 20240201, end: 20240203
  3. PACLITAXEL [Suspect]
     Active Substance: PACLITAXEL
     Indication: Neoplasm malignant
     Dosage: 150 MG, DAILY
     Route: 041
     Dates: start: 20240201, end: 20240201
  4. PACLITAXEL [Suspect]
     Active Substance: PACLITAXEL
     Dosage: 150 MG, DAILY
     Route: 041
     Dates: start: 20240208, end: 20240208

REACTIONS (1)
  - White blood cell count decreased [Recovering/Resolving]

NARRATIVE: CASE EVENT DATE: 20240215
